FAERS Safety Report 7436080-9 (Version None)
Quarter: 2011Q2

REPORT INFORMATION
  Report Type: 
  Country: None (occurrence: None)
  Receive Date: 20110425
  Receipt Date: 20110413
  Transmission Date: 20111010
  Serious: Yes (Death)
  Sender: FDA-Public Use
  Company Number: CH-BAYER-2011-031768

PATIENT
  Sex: Female

DRUGS (7)
  1. MEROPENEM [Suspect]
     Indication: PSEUDOMEMBRANOUS COLITIS
     Dosage: 1 G, BID
     Dates: start: 20110105, end: 20110112
  2. BENERVA [Concomitant]
  3. VANCOMYCIN [Suspect]
     Indication: PSEUDOMEMBRANOUS COLITIS
     Dosage: 500 MG, QID VIA GASTRIC TUBE
     Route: 048
     Dates: start: 20110106, end: 20110112
  4. NEXIUM [Suspect]
     Dosage: 40 MG, QD
     Route: 048
     Dates: end: 20110114
  5. CIPROXIN INFUSION 0.4 [Suspect]
     Indication: PSEUDOMONAS INFECTION
     Dosage: 400 MG, BID
     Route: 042
     Dates: start: 20110107, end: 20110113
  6. PROPOFOL [Concomitant]
     Dosage: UNK
     Route: 042
     Dates: start: 20110109, end: 20110111
  7. FLAGYL [Suspect]
     Indication: PSEUDOMEMBRANOUS COLITIS
     Dosage: 500 MG, TID, VIA GASTRIC TUBE
     Route: 048
     Dates: start: 20110104, end: 20110114

REACTIONS (4)
  - ATRIAL FIBRILLATION [None]
  - HEPATOCELLULAR INJURY [None]
  - CEREBRAL INFARCTION [None]
  - PUPILS UNEQUAL [None]
